FAERS Safety Report 14681125 (Version 1)
Quarter: 2018Q1

REPORT INFORMATION
  Report Type: Not Available
  Country: US (occurrence: US)
  Receive Date: 20180326
  Receipt Date: 20180326
  Transmission Date: 20180509
  Serious: Yes (Other)
  Sender: FDA-Public Use
  Company Number: US-FOUNDATIONCONSUMERHC-2018-US-004720

PATIENT
  Age: 38 Year
  Sex: Female
  Weight: 54.43 kg

DRUGS (5)
  1. PLAN B ONE-STEP [Suspect]
     Active Substance: LEVONORGESTREL
     Dosage: 1.5MG
     Route: 048
     Dates: start: 201703, end: 201703
  2. TYLENOL [Concomitant]
     Active Substance: ACETAMINOPHEN
  3. UNSPECIFIED ^VITAMINS^ [Concomitant]
  4. ADVIL [Concomitant]
     Active Substance: IBUPROFEN
  5. PLAN B ONE-STEP [Suspect]
     Active Substance: LEVONORGESTREL
     Dosage: 1.5MG
     Route: 048
     Dates: start: 20180302, end: 20180302

REACTIONS (7)
  - Menstruation delayed [Recovered/Resolved]
  - Polymenorrhoea [Recovered/Resolved]
  - Breast pain [Unknown]
  - Abdominal pain lower [Recovered/Resolved]
  - Drug ineffective [Unknown]
  - Pregnancy after post coital contraception [Unknown]
  - Abortion spontaneous [Unknown]

NARRATIVE: CASE EVENT DATE: 2017
